FAERS Safety Report 4619592-2 (Version None)
Quarter: 2005Q2

REPORT INFORMATION
  Report Type: 
  Country: None (occurrence: None)
  Receive Date: 20050321
  Receipt Date: 20040610
  Transmission Date: 20051028
  Serious: Yes (Other)
  Sender: FDA-Public Use
  Company Number: 2004-06-0943

PATIENT
  Age: 50 Year
  Sex: Female
  Weight: 65.7716 kg

DRUGS (8)
  1. PEG-INTRON [Suspect]
     Indication: HEPATITIS B
     Dosage: QW SUBCUTANEOUS
     Route: 058
     Dates: start: 20040507, end: 20040528
  2. PEG-INTRON [Suspect]
     Indication: HEPATITIS C
     Dosage: QW SUBCUTANEOUS
     Route: 058
     Dates: start: 20040507, end: 20040528
  3. REBETOL [Suspect]
     Indication: HEPATITIS B
     Dosage: 1000 MG DAILY ORAL
     Route: 048
     Dates: start: 20040507, end: 20040528
  4. REBETOL [Suspect]
     Indication: HEPATITIS C
     Dosage: 1000 MG DAILY ORAL
     Route: 048
     Dates: start: 20040507, end: 20040528
  5. LIPITOR [Concomitant]
  6. TYLENOL W/ CODEINE NO. 3 [Concomitant]
  7. ANTIHYPERTENSIVE AGENT (NOS) [Concomitant]
  8. ADVIL [Concomitant]

REACTIONS (10)
  - ANOREXIA [None]
  - ASTHENIA [None]
  - BACK PAIN [None]
  - CONTUSION [None]
  - INSOMNIA [None]
  - MEDICATION ERROR [None]
  - PAIN IN EXTREMITY [None]
  - RESTLESSNESS [None]
  - SPEECH DISORDER [None]
  - WEIGHT DECREASED [None]
